FAERS Safety Report 8566822-0 (Version None)
Quarter: 2012Q3

REPORT INFORMATION
  Report Type: 
  Country: None (occurrence: None)
  Receive Date: 20120803
  Receipt Date: 20111130
  Transmission Date: 20120928
  Serious: No
  Sender: FDA-Public Use
  Company Number: US-ABBOTT-11P-163-0879858-00

PATIENT
  Age: 68 Year
  Sex: Male

DRUGS (5)
  1. SEVERAL BLOOD PRESSURE MEDICATIONS [Concomitant]
     Indication: HYPERTENSION
  2. PLAVIX [Concomitant]
     Indication: PRODUCT USED FOR UNKNOWN INDICATION
  3. UNKNOWN DIABETES MEDICATION [Concomitant]
     Indication: TYPE 2 DIABETES MELLITUS
  4. NIASPAN [Suspect]
     Indication: HIGH DENSITY LIPOPROTEIN DECREASED
     Dates: start: 20111101, end: 20111101
  5. STATIN [Concomitant]
     Indication: BLOOD CHOLESTEROL ABNORMAL

REACTIONS (1)
  - FLUSHING [None]
